FAERS Safety Report 5306050-5 (Version None)
Quarter: 2007Q2

REPORT INFORMATION
  Report Type: 
  Country: None (occurrence: None)
  Receive Date: 20070424
  Receipt Date: 20060418
  Transmission Date: 20071010
  Serious: No
  Sender: FDA-Public Use
  Company Number: US-BRISTOL-MYERS SQUIBB COMPANY-13350095

PATIENT
  Age: 74 Year
  Sex: Female
  Weight: 50 kg

DRUGS (5)
  1. CYTOXAN [Suspect]
     Indication: MULTIPLE MYELOMA
     Route: 048
     Dates: start: 20060201
  2. NEURONTIN [Concomitant]
  3. VITAMINS [Concomitant]
  4. CALCIUM [Concomitant]
  5. MINERAL TAB [Concomitant]

REACTIONS (4)
  - ABDOMINAL DISTENSION [None]
  - ABDOMINAL PAIN [None]
  - DIARRHOEA [None]
  - NAUSEA [None]
